FAERS Safety Report 10111153 (Version 2)
Quarter: 2014Q3

REPORT INFORMATION
  Report Type: Spontaneous
  Country: US (occurrence: None)
  Receive Date: 20140421
  Receipt Date: 20140722
  Transmission Date: 20150326
  Serious: No
  Sender: FDA-Public Use
  Company Number: AEGR000098

PATIENT
  Age: 19 Year
  Sex: Female
  Weight: 58.7 kg

DRUGS (8)
  1. JUXTAPID [Suspect]
     Active Substance: LOMITAPIDE MESYLATE
     Indication: TYPE IIA HYPERLIPIDAEMIA
     Route: 048
     Dates: start: 20130213, end: 201304
  2. ASPIRIN (ACETYLSALICYLIC ACID) [Concomitant]
     Active Substance: ASPIRIN
  3. FOLIC ACID (FOLIC ACID) [Concomitant]
     Active Substance: FOLIC ACID
  4. ZETIA (EXETIMIBE) [Concomitant]
  5. CRESTOR [Concomitant]
     Active Substance: ROSUVASTATIN CALCIUM
  6. IRON (FERROUS SULFATE) [Concomitant]
  7. COLESEVELAM (COLESEVELAM) [Concomitant]
  8. PRENATAL VITAMINS (ASCORBIC ACID, CALCIUM PANTOTHENATE, CYANOCOBALAMIN, ERGOCALCIFEROL, NICOTINAMIDE, PYRIDOXINE HYDROCHLORIDE, RETINOL PALMITATE, RIBOFLAVIN, THIAMINE MONONITRATE) [Concomitant]

REACTIONS (2)
  - No adverse event [None]
  - Exposure during pregnancy [None]

NARRATIVE: CASE EVENT DATE: 201304
